FAERS Safety Report 7084619-8 (Version None)
Quarter: 2010Q4

REPORT INFORMATION
  Report Type: 
  Country: None (occurrence: None)
  Receive Date: 20101104
  Receipt Date: 20101025
  Transmission Date: 20110411
  Serious: Yes (Other)
  Sender: FDA-Public Use
  Company Number: PHHY2010US10642

PATIENT
  Sex: Female
  Weight: 132 kg

DRUGS (15)
  1. GLEEVEC [Suspect]
     Indication: CHRONIC MYELOID LEUKAEMIA
     Dosage: 400 MG, QD
     Dates: start: 20091124
  2. GLEEVEC [Suspect]
     Dosage: 200 MG, QD
     Route: 048
     Dates: start: 20091127, end: 20100209
  3. GLEEVEC [Suspect]
     Dosage: 200 MG, QD
     Route: 048
  4. GLEEVEC [Suspect]
     Dosage: 400 MG, UNK
     Route: 048
     Dates: start: 20091121
  5. KLONOPIN [Suspect]
     Dosage: 0.5 MG, TID
  6. TRICOR [Concomitant]
     Dosage: 145 MG, BID
     Route: 048
  7. INDERAL [Concomitant]
     Dosage: 40 MG, BID, 60 MG ONCE DAILY
     Route: 048
     Dates: start: 20100201
  8. REMERON [Concomitant]
     Dosage: 18 MG, QD
  9. PREVACID [Concomitant]
     Dosage: 30 MG, BID
     Route: 048
  10. PRAVACHOL [Concomitant]
     Dosage: 20 MG/DAY
     Route: 048
  11. PREMARIN [Concomitant]
     Dosage: 0.3 MG, BID
     Route: 048
  12. CLONAZEPAM [Concomitant]
     Dosage: 0.5 MG, BID
     Route: 048
  13. MIRTAZAPINE [Concomitant]
     Dosage: 7.5 MG (AT BEDTIME)
     Route: 048
  14. METOPROLOL [Concomitant]
     Indication: ATRIAL FIBRILLATION
     Dosage: UNK
     Dates: start: 20100208
  15. ALLOPURINOL [Concomitant]
     Indication: BLOOD URIC ACID

REACTIONS (24)
  - ASTHENIA [None]
  - ATRIOVENTRICULAR BLOCK FIRST DEGREE [None]
  - BLOOD GLUCOSE INCREASED [None]
  - DIZZINESS [None]
  - EOSINOPHIL COUNT INCREASED [None]
  - GAIT DISTURBANCE [None]
  - GLOMERULAR FILTRATION RATE DECREASED [None]
  - HAEMATOCRIT DECREASED [None]
  - HAEMOGLOBIN DECREASED [None]
  - HYPERTENSION [None]
  - HYPOAESTHESIA [None]
  - JOINT SWELLING [None]
  - LOSS OF CONSCIOUSNESS [None]
  - MUSCULAR WEAKNESS [None]
  - NAUSEA [None]
  - OEDEMA PERIPHERAL [None]
  - PAIN IN EXTREMITY [None]
  - PARAESTHESIA [None]
  - PLATELET COUNT DECREASED [None]
  - RASH [None]
  - RED BLOOD CELL COUNT DECREASED [None]
  - SINUS BRADYCARDIA [None]
  - SWELLING FACE [None]
  - WHITE BLOOD CELL COUNT DECREASED [None]
